FAERS Safety Report 20169668 (Version 3)
Quarter: 2022Q1

REPORT INFORMATION
  Report Type: Spontaneous
  Country: US (occurrence: US)
  Receive Date: 20211210
  Receipt Date: 20220131
  Transmission Date: 20220423
  Serious: Yes (Life-Threatening, Hospitalization, Other)
  Sender: FDA-Public Use
  Company Number: US-drreddys-SPO/USA/21/0144530

PATIENT
  Age: 75 Year
  Sex: Female

DRUGS (1)
  1. CAPECITABINE [Suspect]
     Active Substance: CAPECITABINE
     Indication: Cholangiocarcinoma

REACTIONS (5)
  - Hypovolaemic shock [Unknown]
  - Gastrointestinal haemorrhage [Unknown]
  - Necrotising oesophagitis [Unknown]
  - Gastrointestinal necrosis [Unknown]
  - Sepsis [Unknown]
